FAERS Safety Report 25051452 (Version 1)
Quarter: 2025Q1

REPORT INFORMATION
  Report Type: Spontaneous
  Country: US (occurrence: None)
  Receive Date: 20250307
  Receipt Date: 20250307
  Transmission Date: 20250408
  Serious: Yes (Other)
  Sender: FDA-CTU
  Company Number: None

PATIENT
  Age: 60 Year
  Sex: Male

DRUGS (1)
  1. HUMIRA [Suspect]
     Active Substance: ADALIMUMAB
     Indication: Colitis ulcerative
     Route: 058

REACTIONS (6)
  - Impaired healing [None]
  - Thermal burn [None]
  - Localised infection [None]
  - Haemorrhage [None]
  - Drug ineffective [None]
  - Colitis ulcerative [None]

NARRATIVE: CASE EVENT DATE: 20250307
